FAERS Safety Report 25281825 (Version 2)
Quarter: 2025Q3

REPORT INFORMATION
  Report Type: Report from Study
  Country: US (occurrence: US)
  Receive Date: 20250508
  Receipt Date: 20250809
  Transmission Date: 20251020
  Serious: Yes (Other)
  Sender: ALEXION PHARMACEUTICALS
  Company Number: US-AstraZeneca-CH-00863650A

PATIENT
  Sex: Male

DRUGS (1)
  1. ACALABRUTINIB [Suspect]
     Active Substance: ACALABRUTINIB
     Indication: Chronic lymphocytic leukaemia
     Dosage: 100 MILLIGRAM, BID
     Dates: start: 20250322

REACTIONS (8)
  - Cough [Unknown]
  - Balance disorder [Unknown]
  - Dyspnoea [Unknown]
  - Pulmonary oedema [Unknown]
  - Oxygen saturation abnormal [Unknown]
  - Atrial fibrillation [Unknown]
  - Bowel movement irregularity [Unknown]
  - Constipation [Unknown]
